FAERS Safety Report 7883670-5 (Version None)
Quarter: 2011Q4

REPORT INFORMATION
  Report Type: 
  Country: None (occurrence: None)
  Receive Date: 20111102
  Receipt Date: 20111028
  Transmission Date: 20120403
  Serious: Yes (Other)
  Sender: FDA-Public Use
  Company Number: JP-PFIZER INC-2011265057

PATIENT
  Age: 78 Year
  Sex: Male

DRUGS (11)
  1. LYRICA [Suspect]
     Indication: PAIN
     Dosage: 25 MG, 1X/DAY
     Route: 048
     Dates: start: 20111026, end: 20111026
  2. LYRICA [Suspect]
     Dosage: 25 MG, 1X/DAY
     Route: 048
     Dates: start: 20111028
  3. INSULIN [Concomitant]
     Dosage: UNK
     Route: 058
  4. INDERAL [Concomitant]
     Dosage: UNK
     Route: 048
  5. CARVEDILOL [Concomitant]
     Dosage: UNK
     Route: 048
  6. SUNRYTHM [Concomitant]
     Dosage: UNK
     Route: 048
  7. LYRICA [Suspect]
     Dosage: 25 MG, 2X/DAY
     Route: 048
     Dates: start: 20111027, end: 20111027
  8. WARFARIN [Concomitant]
     Dosage: UNK
     Route: 048
  9. DIGOXIN [Concomitant]
     Dosage: UNK
     Route: 048
  10. LIPITOR [Concomitant]
     Dosage: UNK
     Route: 048
  11. CANDESARTAN CILEXETIL [Concomitant]
     Dosage: UNK
     Route: 048

REACTIONS (1)
  - BLOOD GLUCOSE INCREASED [None]
